FAERS Safety Report 8874133 (Version 2)
Quarter: 2013Q4

REPORT INFORMATION
  Report Type: Spontaneous
  Country: CA (occurrence: CA)
  Receive Date: 20121030
  Receipt Date: 20131105
  Transmission Date: 20140711
  Serious: Yes (Death, Other)
  Sender: FDA-Public Use
  Company Number: CA-009507513-1210CAN010440

PATIENT
  Age: 37 Year
  Sex: Female

DRUGS (3)
  1. TEMOZOLOMIDE [Suspect]
     Indication: GLIOBLASTOMA MULTIFORME
     Dosage: 75 MG/M2, QD
  2. RADIATION THERAPY [Suspect]
     Indication: GLIOBLASTOMA MULTIFORME
     Dosage: COMBINED DOSE OF 60 GY IN 30 FRACTIONS
  3. RADIATION THERAPY [Suspect]
     Dosage: 20 GY

REACTIONS (9)
  - General physical health deterioration [Fatal]
  - Bone marrow failure [Unknown]
  - IIIrd nerve paralysis [Unknown]
  - Neoplasm recurrence [Unknown]
  - Neoplasm progression [Unknown]
  - Quadriparesis [Unknown]
  - Paraesthesia [Unknown]
  - Urinary incontinence [Unknown]
  - Asthenia [Unknown]
